FAERS Safety Report 24571504 (Version 2)
Quarter: 2024Q4

REPORT INFORMATION
  Report Type: Report from Study
  Country: US (occurrence: US)
  Receive Date: 20241101
  Receipt Date: 20241205
  Transmission Date: 20250115
  Serious: Yes (Other)
  Sender: UCB
  Company Number: US-UCBSA-2024055435

PATIENT
  Age: 37 Year
  Sex: Female
  Weight: 93.2 kg

DRUGS (2)
  1. FINTEPLA [Suspect]
     Active Substance: FENFLURAMINE
     Indication: Lennox-Gastaut syndrome
     Dosage: UNK
  2. FINTEPLA [Suspect]
     Active Substance: FENFLURAMINE
     Dosage: 1.5 ML QPM FOR 7 DAYS THEN 1.5 ML BID  FOR  7 DAYS , THEN 3 ML BID FOR 7 DAYS  AND THEN 4 ML BID FOR

REACTIONS (3)
  - Mitral valve incompetence [Unknown]
  - Tricuspid valve incompetence [Unknown]
  - Off label use [Unknown]

NARRATIVE: CASE EVENT DATE: 20240926
